FAERS Safety Report 12631639 (Version 2)
Quarter: 2016Q3

REPORT INFORMATION
  Report Type: Spontaneous
  Country: US (occurrence: US)
  Receive Date: 20160808
  Receipt Date: 20160808
  Transmission Date: 20161109
  Serious: No
  Sender: FDA-Public Use
  Company Number: US-BEH-2015055100

PATIENT
  Sex: Male
  Weight: 50 kg

DRUGS (14)
  1. COMPOUND W [Concomitant]
     Active Substance: SALICYLIC ACID
  2. CYPROHEPTADINE. [Concomitant]
     Active Substance: CYPROHEPTADINE
  3. RANITIDINE. [Concomitant]
     Active Substance: RANITIDINE
  4. CLOBETASOL [Concomitant]
     Active Substance: CLOBETASOL
  5. METHYLPHENIDATE. [Concomitant]
     Active Substance: METHYLPHENIDATE
  6. ENBREL [Concomitant]
     Active Substance: ETANERCEPT
  7. EPIPEN [Concomitant]
     Active Substance: EPINEPHRINE
     Indication: ANAPHYLACTIC REACTION
  8. PROAIR HFA [Concomitant]
     Active Substance: ALBUTEROL SULFATE
  9. OMEPRAZOLE. [Concomitant]
     Active Substance: OMEPRAZOLE
  10. PROTOPIC [Concomitant]
     Active Substance: TACROLIMUS
  11. HIZENTRA [Suspect]
     Active Substance: HUMAN IMMUNOGLOBULIN G
     Indication: IMMUNODEFICIENCY
     Route: 058
  12. DIPHENHYDRAMINE. [Concomitant]
     Active Substance: DIPHENHYDRAMINE
     Indication: ANAPHYLACTIC REACTION
  13. AMANTADINE [Concomitant]
     Active Substance: AMANTADINE
  14. NASONEX [Concomitant]
     Active Substance: MOMETASONE FUROATE

REACTIONS (1)
  - Skin discolouration [Unknown]
